FAERS Safety Report 6577191-X (Version None)
Quarter: 2010Q1

REPORT INFORMATION
  Report Type: 
  Country: None (occurrence: None)
  Receive Date: 20100210
  Receipt Date: 20100129
  Transmission Date: 20100710
  Serious: Yes (Hospitalization, Other)
  Sender: FDA-Public Use
  Company Number: PHHO2005BR12057

PATIENT
  Sex: Female
  Weight: 90 kg

DRUGS (14)
  1. DIOVAN HCT [Suspect]
     Indication: HYPERTENSION
     Dosage: 1 TABLET (80/12.5 MG) IN THE MORNING
     Route: 048
     Dates: start: 20050701
  2. DIOVAN [Suspect]
     Indication: BLOOD PRESSURE INCREASED
     Dosage: 1 TABLET (80 MG) AT NIGHT
     Dates: start: 20070601
  3. FORASEQ [Suspect]
     Dosage: BID (MORNING AND NIGHT)
     Dates: start: 20070630
  4. APRESOLINE [Suspect]
     Indication: HYPERTENSION
     Dosage: 1 DF, BID (MORNING AND NIGHT)
     Route: 048
     Dates: start: 20070907, end: 20070926
  5. ATENOLOL [Suspect]
     Indication: HYPERTENSION
     Dosage: 50 MG
  6. NATRILIX [Concomitant]
     Indication: HYPERTENSION
     Dates: end: 20050701
  7. BLOPRESS [Concomitant]
     Indication: HYPERTENSION
     Dates: end: 20050701
  8. SOTALOL HCL [Concomitant]
     Indication: CARDIAC FIBRILLATION
     Dosage: HALF TABLET (160 MG) IN THE MORNING AND HALF TABLET AT NIGHT
     Route: 048
  9. HIPERTIL [Concomitant]
     Indication: BLOOD PRESSURE
     Dosage: 1 TABLET (300 MG) DAILY
     Route: 048
  10. FRONTAL [Concomitant]
  11. MAREVAN [Concomitant]
     Indication: ANTICOAGULANT THERAPY
  12. SOMALGIN [Concomitant]
     Indication: ANTICOAGULANT THERAPY
     Dosage: ONE TABLET (100 MG) DAILY
     Route: 048
  13. BUFERIN [Concomitant]
  14. CAPTOPRIL [Concomitant]

REACTIONS (30)
  - ANGINA PECTORIS [None]
  - ARRHYTHMIA [None]
  - ATRIAL FIBRILLATION [None]
  - BLINDNESS [None]
  - CARDIAC FAILURE [None]
  - CHROMATOPSIA [None]
  - CONFUSIONAL STATE [None]
  - COUGH [None]
  - FEELING ABNORMAL [None]
  - HEADACHE [None]
  - HEART RATE DECREASED [None]
  - HEART RATE INCREASED [None]
  - HYPERTENSION [None]
  - LUNG DISORDER [None]
  - LYMPHOCYTE COUNT INCREASED [None]
  - MALAISE [None]
  - NASOPHARYNGITIS [None]
  - NECK PAIN [None]
  - NERVOUSNESS [None]
  - NEUTROPHIL COUNT INCREASED [None]
  - OEDEMA PERIPHERAL [None]
  - PAIN IN EXTREMITY [None]
  - PNEUMONIA [None]
  - PYREXIA [None]
  - RETINAL DETACHMENT [None]
  - RETINOPEXY [None]
  - SINUS DISORDER [None]
  - TACHYCARDIA [None]
  - TENSION [None]
  - WHITE BLOOD CELL COUNT INCREASED [None]
